FAERS Safety Report 8847636 (Version 2)
Quarter: 2013Q1

REPORT INFORMATION
  Report Type: Spontaneous
  Country: US (occurrence: US)
  Receive Date: 20121018
  Receipt Date: 20130122
  Transmission Date: 20140127
  Serious: Yes (Other)
  Sender: FDA-Public Use
  Company Number: US-ASTRAZENECA-2012SE77551

PATIENT
  Age: 36 Year
  Sex: Male
  Weight: 66.5 kg

DRUGS (3)
  1. CAPRELSA [Suspect]
     Indication: THYROID CANCER
     Route: 048
     Dates: start: 201110, end: 20120708
  2. THYROXINE [Concomitant]
     Indication: THYROID DISORDER
     Route: 048
     Dates: start: 20110708
  3. PANTOPRAZOLE [Concomitant]
     Indication: GASTROOESOPHAGEAL REFLUX DISEASE
     Route: 048
     Dates: start: 20110810

REACTIONS (3)
  - Malignant neoplasm progression [Unknown]
  - Diarrhoea [Recovering/Resolving]
  - Rash [Unknown]
